FAERS Safety Report 9729888 (Version 3)
Quarter: 2014Q3

REPORT INFORMATION
  Report Type: Spontaneous
  Country: US (occurrence: US)
  Receive Date: 20131204
  Receipt Date: 20140820
  Transmission Date: 20150326
  Serious: Yes (Hospitalization, Other)
  Sender: FDA-Public Use
  Company Number: US-009507513-1311USA011397

PATIENT
  Sex: Female

DRUGS (1)
  1. NUVARING [Suspect]
     Active Substance: ETHINYL ESTRADIOL\ETONOGESTREL
     Indication: CONTRACEPTION
     Dosage: UNK
     Route: 067
     Dates: start: 20120309

REACTIONS (9)
  - Thrombosis [Unknown]
  - Sleep disorder due to general medical condition, insomnia type [Unknown]
  - Sleep apnoea syndrome [Unknown]
  - Depression [Unknown]
  - Haemorrhage intracranial [Recovered/Resolved with Sequelae]
  - Cerebral venous thrombosis [Recovered/Resolved with Sequelae]
  - Intracerebral haematoma evacuation [Recovered/Resolved with Sequelae]
  - Craniectomy [Recovered/Resolved with Sequelae]
  - Vision blurred [Unknown]

NARRATIVE: CASE EVENT DATE: 20120707
